FAERS Safety Report 6842187-7 (Version None)
Quarter: 2010Q3

REPORT INFORMATION
  Report Type: 
  Country: None (occurrence: None)
  Receive Date: 20100714
  Receipt Date: 20070924
  Transmission Date: 20110219
  Serious: No
  Sender: FDA-Public Use
  Company Number: US-PFIZER INC-2007061421

PATIENT
  Sex: Female
  Weight: 49.4 kg

DRUGS (5)
  1. CHANTIX [Suspect]
     Indication: SMOKING CESSATION THERAPY
     Route: 048
     Dates: start: 20070701
  2. VITAMINS [Concomitant]
  3. CALCIUM [Concomitant]
  4. ACIPHEX [Concomitant]
     Indication: GASTROOESOPHAGEAL REFLUX DISEASE
  5. PREMARIN [Concomitant]
     Indication: HORMONE REPLACEMENT THERAPY

REACTIONS (5)
  - ABNORMAL DREAMS [None]
  - CONSTIPATION [None]
  - FLATULENCE [None]
  - HOT FLUSH [None]
  - INSOMNIA [None]
